FAERS Safety Report 18337390 (Version 5)
Quarter: 2022Q1

REPORT INFORMATION
  Report Type: Spontaneous
  Country: US (occurrence: None)
  Receive Date: 20201002
  Receipt Date: 20220201
  Transmission Date: 20220423
  Serious: Yes (Hospitalization, Other)
  Sender: FDA-Public Use
  Company Number: 2020SF25300

PATIENT
  Age: 18493 Day
  Sex: Female
  Weight: 93.4 kg

DRUGS (81)
  1. FARXIGA [Suspect]
     Active Substance: DAPAGLIFLOZIN PROPANEDIOL
     Indication: Type 2 diabetes mellitus
     Route: 048
     Dates: start: 20150207, end: 201801
  2. FARXIGA [Suspect]
     Active Substance: DAPAGLIFLOZIN PROPANEDIOL
     Indication: Weight decreased
     Route: 048
     Dates: start: 20150207, end: 201801
  3. FARXIGA [Suspect]
     Active Substance: DAPAGLIFLOZIN PROPANEDIOL
     Indication: Blood pressure decreased
     Route: 048
     Dates: start: 20150207, end: 201801
  4. CEPHALEXIN [Concomitant]
     Active Substance: CEPHALEXIN
  5. PAROXETINE [Concomitant]
     Active Substance: PAROXETINE
  6. PREDNISONE [Concomitant]
     Active Substance: PREDNISONE
  7. PROAIR HFA [Concomitant]
     Active Substance: ALBUTEROL SULFATE
  8. BENZONATATE [Concomitant]
     Active Substance: BENZONATATE
  9. SYNTHROID [Concomitant]
     Active Substance: LEVOTHYROXINE SODIUM
  10. HUMULIN NOS [Concomitant]
     Active Substance: INSULIN HUMAN
  11. CIPROFLOXACIN [Concomitant]
     Active Substance: CIPROFLOXACIN
  12. IMIQUIMOD [Concomitant]
     Active Substance: IMIQUIMOD
  13. TRULICITY [Concomitant]
     Active Substance: DULAGLUTIDE
  14. LORAZEPAM [Concomitant]
     Active Substance: LORAZEPAM
  15. ACETAMINOPHEN\OXYCODONE HYDROCHLORIDE [Concomitant]
     Active Substance: ACETAMINOPHEN\OXYCODONE HYDROCHLORIDE
  16. RIZATRIPTAN [Concomitant]
     Active Substance: RIZATRIPTAN
  17. VICTOZA [Concomitant]
     Active Substance: LIRAGLUTIDE
  18. HYOPHEN [Concomitant]
     Active Substance: BENZOIC ACID\HYOSCYAMINE SULFATE\METHENAMINE\METHYLENE BLUE\PHENYL SALICYLATE
  19. LANTUS [Concomitant]
     Active Substance: INSULIN GLARGINE
  20. BYETTA [Concomitant]
     Active Substance: EXENATIDE
  21. OMEPRAZOLE [Concomitant]
     Active Substance: OMEPRAZOLE
  22. CEFUROXIME [Concomitant]
     Active Substance: CEFUROXIME
  23. SIMVASTATIN [Concomitant]
     Active Substance: SIMVASTATIN
  24. ABILIFY [Concomitant]
     Active Substance: ARIPIPRAZOLE
  25. MUPIROCIN [Concomitant]
     Active Substance: MUPIROCIN
  26. ACETAZOLAMIDE [Concomitant]
     Active Substance: ACETAZOLAMIDE
  27. LUMIGAN [Concomitant]
     Active Substance: BIMATOPROST
  28. ONDANSETRON [Concomitant]
     Active Substance: ONDANSETRON
  29. TRETINOIN [Concomitant]
     Active Substance: TRETINOIN
  30. DOXYCYCLINE HYCLATE [Concomitant]
     Active Substance: DOXYCYCLINE HYCLATE
  31. IMITREX [Concomitant]
     Active Substance: SUMATRIPTAN SUCCINATE
  32. COMBIGAN [Concomitant]
     Active Substance: BRIMONIDINE TARTRATE\TIMOLOL MALEATE
  33. VIGAMOX [Concomitant]
     Active Substance: MOXIFLOXACIN HYDROCHLORIDE
  34. ORPHENADRINE/ACETYLSALICYLIC ACID/DEXAMETHASONE [Concomitant]
  35. QUETIAPINE [Concomitant]
     Active Substance: QUETIAPINE
  36. GLUCOPHAGE [Concomitant]
     Active Substance: METFORMIN HYDROCHLORIDE
  37. DIFFERIN [Concomitant]
     Active Substance: ADAPALENE
  38. ZALEPLON [Concomitant]
     Active Substance: ZALEPLON
  39. HYDROMORPHONE [Concomitant]
     Active Substance: HYDROMORPHONE
  40. ESZOPICLONE [Concomitant]
     Active Substance: ESZOPICLONE
  41. NADOLOL [Concomitant]
     Active Substance: NADOLOL
  42. MEDROL [Concomitant]
     Active Substance: METHYLPREDNISOLONE
  43. MORPHINE [Concomitant]
     Active Substance: MORPHINE
  44. VANCOMYCIN [Concomitant]
     Active Substance: VANCOMYCIN
  45. PHYTONADIONE [Concomitant]
     Active Substance: PHYTONADIONE
  46. ATORVASTATIN [Concomitant]
     Active Substance: ATORVASTATIN
     Dates: start: 20210101
  47. FUROSEMIDE [Concomitant]
     Active Substance: FUROSEMIDE
     Dates: start: 20210101
  48. ASPIRIN [Concomitant]
     Active Substance: ASPIRIN
     Dates: start: 20210101
  49. ENOXAPARIN [Concomitant]
     Active Substance: ENOXAPARIN
     Dates: start: 20210101
  50. RIFAXIMIN [Concomitant]
     Active Substance: RIFAXIMIN
     Dates: start: 20210101
  51. METOPROLOL [Concomitant]
     Active Substance: METOPROLOL
  52. MIDAZOLAM [Concomitant]
     Active Substance: MIDAZOLAM
  53. LIDOCAINE [Concomitant]
     Active Substance: LIDOCAINE
  54. VIBERZI [Concomitant]
     Active Substance: ELUXADOLINE
  55. METRONIDAZOLE [Concomitant]
     Active Substance: METRONIDAZOLE
  56. DOCUSATE SODIUM [Concomitant]
     Active Substance: DOCUSATE SODIUM
  57. PERCOCET [Concomitant]
     Active Substance: ACETAMINOPHEN\OXYCODONE HYDROCHLORIDE
  58. PANCREAS EXTRACT/LIVER EXTRACT/BILE SALTS/METHYLARSONATE DISODIUM/PHEN [Concomitant]
  59. PANTOPRAZOLE [Concomitant]
     Active Substance: PANTOPRAZOLE
     Dates: start: 20190315
  60. CEFEPIME [Concomitant]
     Active Substance: CEFEPIME HYDROCHLORIDE
     Dates: start: 20190317
  61. CHLORHEXIDINE GLUCONATE [Concomitant]
     Active Substance: CHLORHEXIDINE GLUCONATE
     Dates: start: 20190317
  62. INSULIN LISPRO [Concomitant]
     Active Substance: INSULIN LISPRO
     Dates: start: 20190317
  63. HALOPERIDOL [Concomitant]
     Active Substance: HALOPERIDOL
  64. MICONAZOLE [Concomitant]
     Active Substance: MICONAZOLE
  65. PROMETHAZINE [Concomitant]
     Active Substance: PROMETHAZINE HYDROCHLORIDE
  66. POLYETHYLENE GLYCOL [Concomitant]
     Active Substance: POLYETHYLENE GLYCOL
  67. SPIRONOLACTONE [Concomitant]
     Active Substance: SPIRONOLACTONE
  68. VICODIN [Concomitant]
     Active Substance: ACETAMINOPHEN\HYDROCODONE BITARTRATE
  69. ZOFRAN ODT [Concomitant]
     Active Substance: ONDANSETRON HYDROCHLORIDE
  70. PAXIL [Concomitant]
     Active Substance: PAROXETINE HYDROCHLORIDE
  71. HUMULIN R [Concomitant]
     Active Substance: INSULIN HUMAN
  72. MAGNESIUM [Concomitant]
     Active Substance: MAGNESIUM
  73. METFORMIN [Concomitant]
     Active Substance: METFORMIN HYDROCHLORIDE
  74. LOSARTAN [Concomitant]
     Active Substance: LOSARTAN
  75. MIRALAX [Concomitant]
     Active Substance: POLYETHYLENE GLYCOL 3350
  76. MUCOMYST [Concomitant]
     Active Substance: ACETYLCYSTEINE
  77. ROMAZICON [Concomitant]
     Active Substance: FLUMAZENIL
  78. GLUCAGON [Concomitant]
     Active Substance: GLUCAGON
  79. GENTAMICIN [Concomitant]
     Active Substance: GENTAMICIN
  80. BOTOX [Concomitant]
     Active Substance: ONABOTULINUMTOXINA
  81. EPINEPHRINE [Concomitant]
     Active Substance: EPINEPHRINE

REACTIONS (9)
  - Fournier^s gangrene [Unknown]
  - Groin abscess [Unknown]
  - Necrotising soft tissue infection [Unknown]
  - Anal abscess [Unknown]
  - Sepsis [Unknown]
  - Erythema [Unknown]
  - Abscess limb [Unknown]
  - Septic shock [Unknown]
  - Urinary tract infection [Unknown]

NARRATIVE: CASE EVENT DATE: 20171222
